FAERS Safety Report 15593973 (Version 1)
Quarter: 2018Q4

REPORT INFORMATION
  Report Type: Spontaneous
  Country: CA (occurrence: CA)
  Receive Date: 20181107
  Receipt Date: 20181107
  Transmission Date: 20190205
  Serious: Yes (Death, Hospitalization)
  Sender: FDA-Public Use
  Company Number: CA-KOWA-18US002671

PATIENT
  Age: 70 Year
  Sex: Male
  Weight: 68 kg

DRUGS (2)
  1. SIMVASTATIN. [Suspect]
     Active Substance: SIMVASTATIN
     Indication: PRODUCT USED FOR UNKNOWN INDICATION
  2. FENOFIBRATE. [Suspect]
     Active Substance: FENOFIBRATE
     Indication: PRODUCT USED FOR UNKNOWN INDICATION

REACTIONS (12)
  - Vomiting [Fatal]
  - Abscess [Fatal]
  - Nausea [Fatal]
  - Abdominal abscess [Fatal]
  - Renal impairment [Fatal]
  - Pancreatitis acute [Fatal]
  - Multiple organ dysfunction syndrome [Fatal]
  - Sepsis [Fatal]
  - Intestinal fistula [Fatal]
  - Intestinal perforation [Fatal]
  - Pancreatic necrosis [Fatal]
  - Abdominal pain [Fatal]
